FAERS Safety Report 18850613 (Version 1)
Quarter: 2021Q1

REPORT INFORMATION
  Report Type: Spontaneous
  Country: US (occurrence: US)
  Receive Date: 20210205
  Receipt Date: 20210205
  Transmission Date: 20210420
  Serious: No
  Sender: FDA-Public Use
  Company Number: US-BLUEPRINT MEDICINES CORPORATION-SP-US-2021-000100

PATIENT
  Sex: Female

DRUGS (1)
  1. GAVRETO [Suspect]
     Active Substance: PRALSETINIB
     Indication: LUNG NEOPLASM MALIGNANT
     Route: 048
     Dates: start: 20210102

REACTIONS (7)
  - Hypoaesthesia [Unknown]
  - Feeling cold [Unknown]
  - Pain in extremity [Unknown]
  - Somnolence [Unknown]
  - Hypoaesthesia oral [Unknown]
  - Chest pain [Unknown]
  - Dizziness [Unknown]
